FAERS Safety Report 12194385 (Version 3)
Quarter: 2018Q1

REPORT INFORMATION
  Report Type: Report from Study
  Country: US (occurrence: US)
  Receive Date: 20160321
  Receipt Date: 20180327
  Transmission Date: 20180508
  Serious: Yes (Death, Other)
  Sender: FDA-Public Use
  Company Number: US-ROCHE-1728190

PATIENT
  Age: 70 Year
  Sex: Male

DRUGS (2)
  1. VALCYTE [Suspect]
     Active Substance: VALGANCICLOVIR HYDROCHLORIDE
     Indication: LUNG TRANSPLANT
     Route: 048
  2. VALCYTE [Suspect]
     Active Substance: VALGANCICLOVIR HYDROCHLORIDE
     Indication: PROPHYLAXIS

REACTIONS (5)
  - Intentional product use issue [Unknown]
  - Squamous cell carcinoma [Unknown]
  - Off label use [Unknown]
  - Lung transplant rejection [Fatal]
  - Skin discolouration [Unknown]

NARRATIVE: CASE EVENT DATE: 20151202
